FAERS Safety Report 9462157 (Version 1)
Quarter: 2013Q3

REPORT INFORMATION
  Report Type: Spontaneous
  Country: US (occurrence: None)
  Receive Date: 20130815
  Receipt Date: 20130815
  Transmission Date: 20140515
  Serious: Yes (Hospitalization)
  Sender: FDA-Public Use
  Company Number: None

PATIENT
  Age: 79 Year
  Sex: Male
  Weight: 78.5 kg

DRUGS (15)
  1. GLIMEPIRIDE [Suspect]
     Dosage: PO?RECENT
     Route: 048
  2. TYLENOL [Concomitant]
  3. DIAMOX [Concomitant]
  4. ADVAIR [Concomitant]
  5. FOSOMAX [Concomitant]
  6. ARIMIDEX [Concomitant]
  7. ATENOLOL [Concomitant]
  8. CELEXA [Concomitant]
  9. VIBRA-TABS [Concomitant]
  10. DOXYCYCLINE [Concomitant]
  11. LASIX [Concomitant]
  12. REMERON [Concomitant]
  13. NTG [Concomitant]
  14. OS CAL [Concomitant]
  15. PROTONIX [Concomitant]

REACTIONS (2)
  - Hypoglycaemia [None]
  - Wrong drug administered [None]
